FAERS Safety Report 21960813 (Version 3)
Quarter: 2025Q3

REPORT INFORMATION
  Report Type: Report from Study
  Country: US (occurrence: US)
  Receive Date: 20230207
  Receipt Date: 20250806
  Transmission Date: 20251020
  Serious: No
  Sender: TAKEDA
  Company Number: US-TAKEDA-2021TUS063442

PATIENT
  Sex: Female
  Weight: 102 kg

DRUGS (15)
  1. BORTEZOMIB [Suspect]
     Active Substance: BORTEZOMIB
     Indication: Plasma cell myeloma
  2. BORTEZOMIB [Suspect]
     Active Substance: BORTEZOMIB
  3. DEXAMETHASONE [Suspect]
     Active Substance: DEXAMETHASONE
  4. AMLODIPINE [Concomitant]
     Active Substance: AMLODIPINE BESYLATE
     Indication: Hypertension
  5. METFORMIN [Concomitant]
     Active Substance: METFORMIN HYDROCHLORIDE
     Indication: Blood glucose increased
  6. METFORMIN [Concomitant]
     Active Substance: METFORMIN HYDROCHLORIDE
     Indication: Glucose tolerance impaired
  7. DARZALEX [Concomitant]
     Active Substance: DARATUMUMAB
     Indication: Plasma cell myeloma
  8. VITAMIN C [Concomitant]
     Active Substance: ASCORBIC ACID
  9. TOLODODEKIN ALFA [Concomitant]
     Active Substance: TOLODODEKIN ALFA
  10. HYDROCHLOROTHIAZIDE [Concomitant]
     Active Substance: HYDROCHLOROTHIAZIDE
  11. ZARXIO [Concomitant]
     Active Substance: FILGRASTIM-SNDZ
  12. CARVEDILOL [Concomitant]
     Active Substance: CARVEDILOL
     Dosage: 6.25 MILLIGRAM, BID
  13. VALACYCLOVIR [Concomitant]
     Active Substance: VALACYCLOVIR HYDROCHLORIDE
  14. ASPIRIN [Concomitant]
     Active Substance: ASPIRIN
  15. ELIQUIS [Concomitant]
     Active Substance: APIXABAN

REACTIONS (10)
  - Decreased immune responsiveness [Unknown]
  - Weight increased [Unknown]
  - Sensitive skin [Unknown]
  - Scar [Unknown]
  - Contusion [Unknown]
  - Skin ulcer [Unknown]
  - Drug ineffective [Unknown]
  - Blood glucose increased [Unknown]
  - Erythema [Unknown]
  - Neutrophil count decreased [Unknown]
